FAERS Safety Report 5516798-5 (Version None)
Quarter: 2007Q4

REPORT INFORMATION
  Report Type: 
  Country: None (occurrence: None)
  Receive Date: 20071114
  Receipt Date: 20071105
  Transmission Date: 20080405
  Serious: Yes (Life-Threatening)
  Sender: FDA-Public Use
  Company Number: HQWYE847728AUG07

PATIENT
  Age: 49 Year
  Sex: Male

DRUGS (6)
  1. CORDARONE [Suspect]
     Indication: CARDIAC FIBRILLATION
     Route: 048
     Dates: start: 20040301, end: 20070101
  2. CORDARONE [Suspect]
     Indication: ARRHYTHMIA
  3. ATORVASTATIN CALCIUM [Concomitant]
     Indication: DYSLIPIDAEMIA
     Dosage: 20 MG, FREQUENCY NOT SPECIFIED
     Route: 048
     Dates: start: 19990101
  4. ASPIRIN [Concomitant]
     Indication: THROMBOSIS PROPHYLAXIS
     Dosage: 100 MG, FREQUENCY NOT SPECIFIED
     Route: 048
     Dates: start: 19990101
  5. BISOPROLOL FUMARATE [Concomitant]
     Indication: TACHYCARDIA
     Dosage: 2.5 MG, FREQUENCY NOT SPECIFIED
     Route: 048
     Dates: start: 19990101
  6. LISINOPRIL [Concomitant]
     Indication: HYPERTENSION
     Dosage: 5 MG, FREQUENCY NOT SPECIFIED
     Route: 048
     Dates: start: 19990101

REACTIONS (2)
  - HYPERTHYROIDISM [None]
  - THYROIDITIS [None]
